FAERS Safety Report 13376911 (Version 2)
Quarter: 2017Q2

REPORT INFORMATION
  Report Type: Report from Study
  Country: US (occurrence: US)
  Receive Date: 20170328
  Receipt Date: 20170419
  Transmission Date: 20170830
  Serious: Yes (Hospitalization, Other)
  Sender: FDA-Public Use
  Company Number: US-GILEAD-2017-0264377

PATIENT
  Age: 39 Year
  Sex: Female

DRUGS (8)
  1. TORSEMIDE. [Concomitant]
     Active Substance: TORSEMIDE
  2. CLARITIN [Concomitant]
     Active Substance: LORATADINE
  3. LORATADINE. [Concomitant]
     Active Substance: LORATADINE
  4. AMBRISENTAN [Suspect]
     Active Substance: AMBRISENTAN
     Indication: PULMONARY ARTERIAL HYPERTENSION
     Dosage: 10 MG, QD
     Route: 065
     Dates: start: 20121130
  5. TRAMADOL HCL [Concomitant]
     Active Substance: TRAMADOL HYDROCHLORIDE
  6. SILDENAFIL. [Suspect]
     Active Substance: SILDENAFIL
     Indication: PRODUCT USED FOR UNKNOWN INDICATION
     Dosage: 20 MG, TID
     Route: 065
     Dates: start: 20121205
  7. LATUDA [Concomitant]
     Active Substance: LURASIDONE HYDROCHLORIDE
  8. SPIRONOLACTONE. [Concomitant]
     Active Substance: SPIRONOLACTONE

REACTIONS (10)
  - Right ventricular failure [Unknown]
  - Pneumonia [Recovered/Resolved]
  - Fluid retention [Recovering/Resolving]
  - Cardiac failure [Recovered/Resolved]
  - Hypokalaemia [Recovering/Resolving]
  - Pulmonary arterial hypertension [Unknown]
  - Dyspnoea [Recovered/Resolved]
  - Cardiac failure congestive [Unknown]
  - Oedema [Unknown]
  - Pneumonia [Recovered/Resolved]

NARRATIVE: CASE EVENT DATE: 20170201
